FAERS Safety Report 6257866-2 (Version None)
Quarter: 2009Q3

REPORT INFORMATION
  Report Type: 
  Country: None (occurrence: None)
  Receive Date: 20090707
  Receipt Date: 20071206
  Transmission Date: 20100115
  Serious: Yes (Other)
  Sender: FDA-Public Use
  Company Number: US-ASTRAZENECA-2007UW07729

PATIENT
  Age: 613 Month
  Sex: Male
  Weight: 116.1 kg

DRUGS (24)
  1. SEROQUEL [Suspect]
     Indication: ANXIETY
     Route: 048
     Dates: start: 19980601, end: 20050901
  2. SEROQUEL [Suspect]
     Indication: SLEEP DISORDER
     Route: 048
     Dates: start: 19980601, end: 20050901
  3. SEROQUEL [Suspect]
     Indication: DEPRESSION
     Route: 048
     Dates: start: 19980601, end: 20050901
  4. SEROQUEL [Suspect]
     Route: 048
     Dates: start: 19980901, end: 20031201
  5. SEROQUEL [Suspect]
     Route: 048
     Dates: start: 19980901, end: 20031201
  6. SEROQUEL [Suspect]
     Route: 048
     Dates: start: 19980901, end: 20031201
  7. SEROQUEL [Suspect]
     Dosage: 100 TO 600 MG
     Route: 048
     Dates: start: 20020531
  8. SEROQUEL [Suspect]
     Dosage: 100 TO 600 MG
     Route: 048
     Dates: start: 20020531
  9. SEROQUEL [Suspect]
     Dosage: 100 TO 600 MG
     Route: 048
     Dates: start: 20020531
  10. THORAZINE [Concomitant]
  11. REMERON [Concomitant]
     Dosage: 15 TO 45 MG
     Dates: start: 20020408
  12. TRAZODONE HCL [Concomitant]
     Dosage: 50 TO 150 MG
     Dates: start: 20051117
  13. KLONOPIN [Concomitant]
     Route: 048
     Dates: start: 20020408
  14. LAMICTAL [Concomitant]
     Dosage: 150 TO 200 MG
     Dates: start: 20050426
  15. TOPAMAX [Concomitant]
     Dosage: 200 TO 800 MG
     Dates: start: 20020408
  16. ZYPREXA [Concomitant]
     Dosage: 15 MG 2 TABLET AT BEDTIME
     Dates: start: 20030120
  17. AVANDIA [Concomitant]
     Dates: start: 20030120
  18. SERZONE [Concomitant]
     Dates: start: 20020408
  19. FLOMAX [Concomitant]
     Dates: start: 20020408
  20. WELLBUTRIN [Concomitant]
     Dates: start: 20030409
  21. MELLARIL [Concomitant]
     Dosage: 50 TO 150 MG
     Dates: start: 20030409
  22. RISPERDAL [Concomitant]
     Dates: start: 20030409
  23. METFORMIN HCL [Concomitant]
     Dosage: 500 MG 2 TABLET IN MORNING, 1 TABLET IN EVENING
     Dates: start: 20020210
  24. ASPIRIN [Concomitant]
     Dates: start: 20050809

REACTIONS (5)
  - ARTHRITIS [None]
  - DIABETES MELLITUS [None]
  - DIABETIC NEUROPATHY [None]
  - RHEUMATOID ARTHRITIS [None]
  - TYPE 2 DIABETES MELLITUS [None]
